FAERS Safety Report 24803583 (Version 4)
Quarter: 2025Q1

REPORT INFORMATION
  Report Type: Spontaneous
  Country: CA (occurrence: None)
  Receive Date: 20250103
  Receipt Date: 20250116
  Transmission Date: 20250409
  Serious: Yes (Death)
  Sender: ORION
  Company Number: CA-002147023-NVSC2024CA243856

PATIENT
  Age: 43 Year
  Sex: Female
  Weight: 68 kg

DRUGS (198)
  1. METHOTREXATE [Suspect]
     Active Substance: METHOTREXATE
     Indication: Rheumatoid arthritis
  2. METHOTREXATE [Suspect]
     Active Substance: METHOTREXATE
  3. METHOTREXATE [Suspect]
     Active Substance: METHOTREXATE
  4. METHOTREXATE [Suspect]
     Active Substance: METHOTREXATE
  5. METHOTREXATE [Suspect]
     Active Substance: METHOTREXATE
  6. METHOTREXATE [Suspect]
     Active Substance: METHOTREXATE
  7. METHOTREXATE [Suspect]
     Active Substance: METHOTREXATE
  8. METHOTREXATE [Suspect]
     Active Substance: METHOTREXATE
  9. ETANERCEPT [Suspect]
     Active Substance: ETANERCEPT
     Indication: Rheumatoid arthritis
  10. ETANERCEPT [Suspect]
     Active Substance: ETANERCEPT
  11. RITUXIMAB [Suspect]
     Active Substance: RITUXIMAB
     Indication: Rheumatoid arthritis
  12. RITUXIMAB [Suspect]
     Active Substance: RITUXIMAB
  13. RITUXIMAB [Suspect]
     Active Substance: RITUXIMAB
  14. LEUCOVORIN CALCIUM [Suspect]
     Active Substance: LEUCOVORIN CALCIUM
     Indication: Product used for unknown indication
  15. BUPIVACAINE HYDROCHLORIDE [Suspect]
     Active Substance: BUPIVACAINE HYDROCHLORIDE
     Indication: Rheumatoid arthritis
  16. BUPIVACAINE HYDROCHLORIDE [Suspect]
     Active Substance: BUPIVACAINE HYDROCHLORIDE
  17. HYDROCORTISONE [Suspect]
     Active Substance: HYDROCORTISONE
     Indication: Rheumatoid arthritis
  18. HYDROCORTISONE [Suspect]
     Active Substance: HYDROCORTISONE
  19. HYDROCORTISONE [Suspect]
     Active Substance: HYDROCORTISONE
  20. HYDROCORTISONE [Suspect]
     Active Substance: HYDROCORTISONE
  21. HYDROMORPHONE HYDROCHLORIDE [Suspect]
     Active Substance: HYDROMORPHONE HYDROCHLORIDE
     Indication: Product used for unknown indication
  22. SOLU-MEDROL [Suspect]
     Active Substance: METHYLPREDNISOLONE SODIUM SUCCINATE
     Indication: Product used for unknown indication
  23. SULFASALAZINE [Suspect]
     Active Substance: SULFASALAZINE
     Indication: Rheumatoid arthritis
  24. SULFASALAZINE [Suspect]
     Active Substance: SULFASALAZINE
  25. SULFASALAZINE [Suspect]
     Active Substance: SULFASALAZINE
  26. SULFASALAZINE [Suspect]
     Active Substance: SULFASALAZINE
  27. SULFASALAZINE [Suspect]
     Active Substance: SULFASALAZINE
  28. SULFASALAZINE [Suspect]
     Active Substance: SULFASALAZINE
  29. SULFASALAZINE [Suspect]
     Active Substance: SULFASALAZINE
  30. SULFASALAZINE [Suspect]
     Active Substance: SULFASALAZINE
  31. SULFASALAZINE [Suspect]
     Active Substance: SULFASALAZINE
  32. TOFACITINIB CITRATE [Suspect]
     Active Substance: TOFACITINIB CITRATE
     Indication: Rheumatoid arthritis
  33. AIMOVIG [Suspect]
     Active Substance: ERENUMAB-AOOE
     Indication: Product used for unknown indication
  34. OTEZLA [Suspect]
     Active Substance: APREMILAST
     Indication: Product used for unknown indication
  35. OTEZLA [Suspect]
     Active Substance: APREMILAST
  36. OTEZLA [Suspect]
     Active Substance: APREMILAST
  37. OTEZLA [Suspect]
     Active Substance: APREMILAST
  38. OTEZLA [Suspect]
     Active Substance: APREMILAST
  39. OTEZLA [Suspect]
     Active Substance: APREMILAST
  40. OTEZLA [Suspect]
     Active Substance: APREMILAST
  41. OTEZLA [Suspect]
     Active Substance: APREMILAST
  42. DICLOFENAC [Suspect]
     Active Substance: DICLOFENAC
     Indication: Product used for unknown indication
  43. DICLOFENAC [Suspect]
     Active Substance: DICLOFENAC
  44. ALENDRONIC ACID [Suspect]
     Active Substance: ALENDRONIC ACID
     Indication: Rheumatoid arthritis
  45. ALENDRONIC ACID [Suspect]
     Active Substance: ALENDRONIC ACID
  46. ALENDRONIC ACID [Suspect]
     Active Substance: ALENDRONIC ACID
  47. ALENDRONIC ACID [Suspect]
     Active Substance: ALENDRONIC ACID
  48. CANDESARTAN [Suspect]
     Active Substance: CANDESARTAN
     Indication: Rheumatoid arthritis
  49. CANDESARTAN [Suspect]
     Active Substance: CANDESARTAN
     Indication: Migraine
  50. COSENTYX [Suspect]
     Active Substance: SECUKINUMAB
     Indication: Product used for unknown indication
  51. LEFLUNOMIDE [Suspect]
     Active Substance: LEFLUNOMIDE
     Indication: Rheumatoid arthritis
  52. LEFLUNOMIDE [Suspect]
     Active Substance: LEFLUNOMIDE
  53. MYCOPHENOLATE MOFETIL [Suspect]
     Active Substance: MYCOPHENOLATE MOFETIL
     Indication: Product used for unknown indication
  54. OXYCODONE [Suspect]
     Active Substance: OXYCODONE
     Indication: Product used for unknown indication
  55. PANTOPRAZOLE [Suspect]
     Active Substance: PANTOPRAZOLE
     Indication: Product used for unknown indication
  56. PANTOPRAZOLE [Suspect]
     Active Substance: PANTOPRAZOLE
  57. QUETIAPINE [Suspect]
     Active Substance: QUETIAPINE
     Indication: Off label use
  58. QUETIAPINE [Suspect]
     Active Substance: QUETIAPINE
  59. ACETAMINOPHEN [Suspect]
     Active Substance: ACETAMINOPHEN
     Indication: Rheumatoid arthritis
  60. ACTEMRA [Suspect]
     Active Substance: TOCILIZUMAB
     Indication: Product used for unknown indication
  61. ACTEMRA [Suspect]
     Active Substance: TOCILIZUMAB
  62. ACTEMRA [Suspect]
     Active Substance: TOCILIZUMAB
  63. ACTEMRA [Suspect]
     Active Substance: TOCILIZUMAB
  64. ACTEMRA [Suspect]
     Active Substance: TOCILIZUMAB
  65. ACTEMRA [Suspect]
     Active Substance: TOCILIZUMAB
  66. ACTEMRA [Suspect]
     Active Substance: TOCILIZUMAB
  67. ACTEMRA [Suspect]
     Active Substance: TOCILIZUMAB
  68. ACTEMRA [Suspect]
     Active Substance: TOCILIZUMAB
  69. ACTEMRA [Suspect]
     Active Substance: TOCILIZUMAB
  70. ACTEMRA [Suspect]
     Active Substance: TOCILIZUMAB
  71. ACTEMRA [Suspect]
     Active Substance: TOCILIZUMAB
  72. ALFACALCIDOL [Suspect]
     Active Substance: ALFACALCIDOL
     Indication: Product used for unknown indication
  73. PREDNISONE [Suspect]
     Active Substance: PREDNISONE
     Indication: Rheumatoid arthritis
  74. PREDNISONE [Suspect]
     Active Substance: PREDNISONE
  75. ATOMOXETINE HYDROCHLORIDE [Suspect]
     Active Substance: ATOMOXETINE HYDROCHLORIDE
     Indication: Product used for unknown indication
  76. IMURAN [Suspect]
     Active Substance: AZATHIOPRINE
     Indication: Rheumatoid arthritis
  77. IMURAN [Suspect]
     Active Substance: AZATHIOPRINE
  78. IMURAN [Suspect]
     Active Substance: AZATHIOPRINE
  79. IMURAN [Suspect]
     Active Substance: AZATHIOPRINE
  80. IMURAN [Suspect]
     Active Substance: AZATHIOPRINE
  81. IMURAN [Suspect]
     Active Substance: AZATHIOPRINE
  82. BERINERT [Suspect]
     Active Substance: HUMAN C1-ESTERASE INHIBITOR
     Indication: Product used for unknown indication
  83. BERINERT [Suspect]
     Active Substance: HUMAN C1-ESTERASE INHIBITOR
  84. BETAMETHASONE [Suspect]
     Active Substance: BETAMETHASONE
     Indication: Product used for unknown indication
  85. BETAMETHASONE [Suspect]
     Active Substance: BETAMETHASONE
  86. BOTULINUM TOXIN TYPE A [Suspect]
     Active Substance: BOTULINUM TOXIN TYPE A
     Indication: Product used for unknown indication
  87. BUPRENORPHINE [Suspect]
     Active Substance: BUPRENORPHINE
     Indication: Product used for unknown indication
  88. BUPRENORPHINE [Suspect]
     Active Substance: BUPRENORPHINE
  89. CALCIUM GLUBIONATE [Suspect]
     Active Substance: CALCIUM GLUBIONATE
     Indication: Rheumatoid arthritis
  90. CALCIUM GLUBIONATE [Suspect]
     Active Substance: CALCIUM GLUBIONATE
  91. CELECOXIB [Suspect]
     Active Substance: CELECOXIB
     Indication: Rheumatoid arthritis
  92. CELECOXIB [Suspect]
     Active Substance: CELECOXIB
  93. CELECOXIB [Suspect]
     Active Substance: CELECOXIB
  94. CELECOXIB [Suspect]
     Active Substance: CELECOXIB
  95. CELECOXIB [Suspect]
     Active Substance: CELECOXIB
  96. CELECOXIB [Suspect]
     Active Substance: CELECOXIB
  97. CETIRIZINE [Suspect]
     Active Substance: CETIRIZINE HYDROCHLORIDE
     Indication: Rheumatoid arthritis
  98. CETIRIZINE [Suspect]
     Active Substance: CETIRIZINE HYDROCHLORIDE
  99. CETIRIZINE [Suspect]
     Active Substance: CETIRIZINE HYDROCHLORIDE
  100. CHLORHEXIDINE [Suspect]
     Active Substance: CHLORHEXIDINE
     Indication: Product used for unknown indication
  101. CHLORHEXIDINE [Suspect]
     Active Substance: CHLORHEXIDINE
  102. CHLORHEXIDINE [Suspect]
     Active Substance: CHLORHEXIDINE
  103. CHOLECALCIFEROL [Suspect]
     Active Substance: CHOLECALCIFEROL
     Indication: Product used for unknown indication
  104. CHOLECALCIFEROL [Suspect]
     Active Substance: CHOLECALCIFEROL
  105. CIMZIA [Suspect]
     Active Substance: CERTOLIZUMAB PEGOL
     Indication: Rheumatoid arthritis
  106. CIMZIA [Suspect]
     Active Substance: CERTOLIZUMAB PEGOL
     Indication: Psoriasis
  107. CIMZIA [Suspect]
     Active Substance: CERTOLIZUMAB PEGOL
  108. CIMZIA [Suspect]
     Active Substance: CERTOLIZUMAB PEGOL
  109. CIMZIA [Suspect]
     Active Substance: CERTOLIZUMAB PEGOL
  110. CIMZIA [Suspect]
     Active Substance: CERTOLIZUMAB PEGOL
  111. CIMZIA [Suspect]
     Active Substance: CERTOLIZUMAB PEGOL
  112. CIMZIA [Suspect]
     Active Substance: CERTOLIZUMAB PEGOL
  113. CORTISONE ACETATE [Suspect]
     Active Substance: CORTISONE ACETATE
     Indication: Rheumatoid arthritis
  114. CORTISONE ACETATE [Suspect]
     Active Substance: CORTISONE ACETATE
  115. CORTISONE ACETATE [Suspect]
     Active Substance: CORTISONE ACETATE
  116. CORTISONE ACETATE [Suspect]
     Active Substance: CORTISONE ACETATE
     Indication: Rheumatoid arthritis
  117. CORTISONE ACETATE [Suspect]
     Active Substance: CORTISONE ACETATE
  118. CORTISONE ACETATE [Suspect]
     Active Substance: CORTISONE ACETATE
  119. CYCLOBENZAPRINE [Suspect]
     Active Substance: CYCLOBENZAPRINE
     Indication: Product used for unknown indication
  120. DESOXIMETASONE [Suspect]
     Active Substance: DESOXIMETASONE
     Indication: Rheumatoid arthritis
  121. DESOXIMETASONE [Suspect]
     Active Substance: DESOXIMETASONE
  122. DOMPERIDONE [Suspect]
     Active Substance: DOMPERIDONE
     Indication: Product used for unknown indication
  123. DOMPERIDONE [Suspect]
     Active Substance: DOMPERIDONE
  124. DOXYCYCLINE HYCLATE [Suspect]
     Active Substance: DOXYCYCLINE HYCLATE
     Indication: Product used for unknown indication
  125. ERGOCALCIFEROL [Suspect]
     Active Substance: ERGOCALCIFEROL
     Indication: Product used for unknown indication
  126. ERGOCALCIFEROL [Suspect]
     Active Substance: ERGOCALCIFEROL
  127. FETZIMA [Suspect]
     Active Substance: LEVOMILNACIPRAN HYDROCHLORIDE
     Indication: Product used for unknown indication
  128. FETZIMA [Suspect]
     Active Substance: LEVOMILNACIPRAN HYDROCHLORIDE
  129. FINACEA [Suspect]
     Active Substance: AZELAIC ACID
     Indication: Product used for unknown indication
  130. FINACEA [Suspect]
     Active Substance: AZELAIC ACID
  131. FLUTICASONE [Suspect]
     Active Substance: FLUTICASONE
     Indication: Product used for unknown indication
  132. FLUTICASONE [Suspect]
     Active Substance: FLUTICASONE
  133. FOLIC ACID [Suspect]
     Active Substance: FOLIC ACID
     Indication: Rheumatoid arthritis
  134. FOLIC ACID [Suspect]
     Active Substance: FOLIC ACID
  135. HUMIRA [Suspect]
     Active Substance: ADALIMUMAB
     Indication: Rheumatoid arthritis
  136. HUMIRA [Suspect]
     Active Substance: ADALIMUMAB
  137. HUMIRA [Suspect]
     Active Substance: ADALIMUMAB
  138. HYDROXYCHLOROQUINE [Suspect]
     Active Substance: HYDROXYCHLOROQUINE
     Indication: Systemic lupus erythematosus
  139. HYDROXYCHLOROQUINE [Suspect]
     Active Substance: HYDROXYCHLOROQUINE
     Indication: Rheumatoid arthritis
  140. KEVZARA [Suspect]
     Active Substance: SARILUMAB
     Indication: Rheumatoid arthritis
  141. LAMOTRIGINE [Suspect]
     Active Substance: LAMOTRIGINE
     Indication: Product used for unknown indication
  142. LAMOTRIGINE [Suspect]
     Active Substance: LAMOTRIGINE
  143. CLIOQUINOL\FLUMETHASONE [Suspect]
     Active Substance: CLIOQUINOL\FLUMETHASONE
     Indication: Rheumatoid arthritis
  144. CLIOQUINOL\FLUMETHASONE [Suspect]
     Active Substance: CLIOQUINOL\FLUMETHASONE
  145. LYRICA [Suspect]
     Active Substance: PREGABALIN
     Indication: Product used for unknown indication
  146. LYRICA [Suspect]
     Active Substance: PREGABALIN
  147. MESALAMINE [Suspect]
     Active Substance: MESALAMINE
     Indication: Crohn^s disease
  148. MESALAMINE [Suspect]
     Active Substance: MESALAMINE
  149. MINOCYCLINE [Suspect]
     Active Substance: MINOCYCLINE HYDROCHLORIDE
     Indication: Rheumatoid arthritis
  150. MINOCYCLINE [Suspect]
     Active Substance: MINOCYCLINE HYDROCHLORIDE
  151. MYRBETRIQ [Suspect]
     Active Substance: MIRABEGRON
     Indication: Product used for unknown indication
     Dosage: EXTENDED-RELEASE
  152. NAPROXEN SODIUM [Suspect]
     Active Substance: NAPROXEN SODIUM
     Indication: Rheumatoid arthritis
  153. NUCALA [Suspect]
     Active Substance: MEPOLIZUMAB
     Indication: Product used for unknown indication
  154. ORENCIA [Suspect]
     Active Substance: ABATACEPT
     Indication: Rheumatoid arthritis
  155. ORENCIA [Suspect]
     Active Substance: ABATACEPT
  156. PERCOCET [Suspect]
     Active Substance: ACETAMINOPHEN\OXYCODONE HYDROCHLORIDE
     Indication: Product used for unknown indication
  157. PERCOCET [Suspect]
     Active Substance: ACETAMINOPHEN\OXYCODONE HYDROCHLORIDE
  158. PHENYLEPHRINE HYDROCHLORIDE [Suspect]
     Active Substance: PHENYLEPHRINE HYDROCHLORIDE
     Indication: Product used for unknown indication
  159. PHTHALYLSULFATHIAZOLE [Suspect]
     Active Substance: PHTHALYLSULFATHIAZOLE
     Indication: Rheumatoid arthritis
  160. PHTHALYLSULFATHIAZOLE [Suspect]
     Active Substance: PHTHALYLSULFATHIAZOLE
  161. PHTHALYLSULFATHIAZOLE [Suspect]
     Active Substance: PHTHALYLSULFATHIAZOLE
  162. PREDNISONE [Suspect]
     Active Substance: PREDNISONE
     Indication: Rheumatoid arthritis
  163. PREDNISONE [Suspect]
     Active Substance: PREDNISONE
  164. PREDNISONE [Suspect]
     Active Substance: PREDNISONE
  165. PREDNISONE [Suspect]
     Active Substance: PREDNISONE
  166. PSEUDOEPHEDRINE [Suspect]
     Active Substance: PSEUDOEPHEDRINE
     Indication: Rheumatoid arthritis
  167. PSEUDOEPHEDRINE [Suspect]
     Active Substance: PSEUDOEPHEDRINE
  168. PSEUDOEPHEDRINE [Suspect]
     Active Substance: PSEUDOEPHEDRINE
  169. RAMIPRIL [Suspect]
     Active Substance: RAMIPRIL
     Indication: Rheumatoid arthritis
  170. RANITIDINE [Suspect]
     Active Substance: RANITIDINE
     Indication: Product used for unknown indication
  171. RANITIDINE [Suspect]
     Active Substance: RANITIDINE
  172. CETIRIZINE HYDROCHLORIDE\PSEUDOEPHEDRINE HYDROCHLORIDE [Suspect]
     Active Substance: CETIRIZINE HYDROCHLORIDE\PSEUDOEPHEDRINE HYDROCHLORIDE
     Indication: Rheumatoid arthritis
  173. CETIRIZINE HYDROCHLORIDE\PSEUDOEPHEDRINE HYDROCHLORIDE [Suspect]
     Active Substance: CETIRIZINE HYDROCHLORIDE\PSEUDOEPHEDRINE HYDROCHLORIDE
  174. REMICADE [Suspect]
     Active Substance: INFLIXIMAB
     Indication: Rheumatoid arthritis
  175. REMICADE [Suspect]
     Active Substance: INFLIXIMAB
  176. REMICADE [Suspect]
     Active Substance: INFLIXIMAB
  177. REMICADE [Suspect]
     Active Substance: INFLIXIMAB
  178. RITUXAN [Suspect]
     Active Substance: RITUXIMAB
     Indication: Rheumatoid arthritis
  179. DIETARY SUPPLEMENT\HERBALS [Suspect]
     Active Substance: DIETARY SUPPLEMENT\HERBALS
     Indication: Product used for unknown indication
  180. SIMPONI [Suspect]
     Active Substance: GOLIMUMAB
     Indication: Rheumatoid arthritis
  181. SIMPONI [Suspect]
     Active Substance: GOLIMUMAB
  182. SIRUKUMAB [Suspect]
     Active Substance: SIRUKUMAB
     Indication: Product used for unknown indication
  183. TOPIRAMATE [Suspect]
     Active Substance: TOPIRAMATE
     Indication: Product used for unknown indication
  184. TOPIRAMATE [Suspect]
     Active Substance: TOPIRAMATE
  185. TRAZODONE [Suspect]
     Active Substance: TRAZODONE HYDROCHLORIDE
     Indication: Product used for unknown indication
  186. TRETINOIN [Suspect]
     Active Substance: TRETINOIN
     Indication: Product used for unknown indication
  187. VITAMIN C [Suspect]
     Active Substance: ASCORBIC ACID
     Indication: Product used for unknown indication
  188. VITAMIN C [Suspect]
     Active Substance: ASCORBIC ACID
  189. PREGABALIN [Suspect]
     Active Substance: PREGABALIN
     Indication: Product used for unknown indication
  190. CALCIUM [Suspect]
     Active Substance: CALCIUM
     Indication: Product used for unknown indication
  191. DICLOFENAC [Suspect]
     Active Substance: DICLOFENAC
     Indication: Product used for unknown indication
  192. LORAZEPAM [Concomitant]
     Active Substance: LORAZEPAM
  193. ATIVAN [Concomitant]
     Active Substance: LORAZEPAM
  194. CODEINE PHOSPHATE [Concomitant]
     Active Substance: CODEINE PHOSPHATE
  195. VASCEPA [Concomitant]
     Active Substance: ICOSAPENT ETHYL
  196. ZESTRIL [Concomitant]
     Active Substance: LISINOPRIL
  197. ZESTRIL [Concomitant]
     Active Substance: LISINOPRIL
  198. DESOGESTREL\ETHINYL ESTRADIOL [Concomitant]
     Active Substance: DESOGESTREL\ETHINYL ESTRADIOL

REACTIONS (6)
  - Off label use [Fatal]
  - Maternal exposure during pregnancy [Fatal]
  - Condition aggravated [Fatal]
  - Overlap syndrome [Fatal]
  - Inappropriate schedule of product administration [Unknown]
  - Overdose [Unknown]
